FAERS Safety Report 20869119 (Version 6)
Quarter: 2022Q3

REPORT INFORMATION
  Report Type: Spontaneous
  Country: US (occurrence: US)
  Receive Date: 20220524
  Receipt Date: 20220705
  Transmission Date: 20221027
  Serious: Yes (Death, Hospitalization, Other)
  Sender: FDA-Public Use
  Company Number: US-PFIZER INC-202200606748

PATIENT
  Age: 89 Year
  Sex: Female
  Weight: 70.748 kg

DRUGS (1)
  1. PREMARIN [Suspect]
     Active Substance: ESTROGENS, CONJUGATED
     Dosage: DIRECTIONS: 1/2 GM PER VAGINA 3X WEEK
     Route: 067

REACTIONS (5)
  - Death [Fatal]
  - Myocardial infarction [Unknown]
  - Neoplasm malignant [Unknown]
  - Off label use [Unknown]
  - Product prescribing error [Unknown]

NARRATIVE: CASE EVENT DATE: 20220512
